FAERS Safety Report 7027418-5 (Version None)
Quarter: 2010Q4

REPORT INFORMATION
  Report Type: 
  Country: None (occurrence: None)
  Receive Date: 20101001
  Receipt Date: 20101001
  Transmission Date: 20110411
  Serious: No
  Sender: FDA-Public Use
  Company Number: None

PATIENT
  Sex: Female
  Weight: 95.8904 kg

DRUGS (2)
  1. FENTANYL-25 [Suspect]
     Indication: BREAST CANCER
     Dosage: 25 MCG Q72HRS PILL
     Dates: start: 20100701, end: 20100801
  2. FENTANYL-25 [Suspect]
     Indication: PAIN
     Dosage: 25 MCG Q72HRS PILL
     Dates: start: 20100701, end: 20100801

REACTIONS (3)
  - INJECTION SITE ERYTHEMA [None]
  - INJECTION SITE IRRITATION [None]
  - NAUSEA [None]
